FAERS Safety Report 11316195 (Version 2)
Quarter: 2015Q3

REPORT INFORMATION
  Report Type: Report from Study
  Country: CA (occurrence: CA)
  Receive Date: 20150728
  Receipt Date: 20150818
  Transmission Date: 20151125
  Serious: Yes (Hospitalization)
  Sender: FDA-Public Use
  Company Number: CA-BIOGENIDEC-2015BI102415

PATIENT
  Age: 58 Year
  Sex: Male

DRUGS (1)
  1. FAMPYRA [Suspect]
     Active Substance: DALFAMPRIDINE
     Indication: GAIT DISTURBANCE
     Route: 048
     Dates: start: 20150131, end: 201506

REACTIONS (3)
  - Cognitive disorder [Unknown]
  - Thoracotomy [Recovered/Resolved]
  - General symptom [Recovered/Resolved]

NARRATIVE: CASE EVENT DATE: 20150602
